FAERS Safety Report 7908117-1 (Version None)
Quarter: 2011Q4

REPORT INFORMATION
  Report Type: 
  Country: None (occurrence: None)
  Receive Date: 20111111
  Receipt Date: 20111107
  Transmission Date: 20120403
  Serious: No
  Sender: FDA-Public Use
  Company Number: US-BIOGENIDEC-2010BI016672

PATIENT
  Sex: Female

DRUGS (1)
  1. TYSABRI [Suspect]
     Indication: MULTIPLE SCLEROSIS
     Route: 042
     Dates: start: 20091209, end: 20110913

REACTIONS (4)
  - GAIT DISTURBANCE [None]
  - STRESS [None]
  - MOBILITY DECREASED [None]
  - DYSGRAPHIA [None]
